FAERS Safety Report 5095563-X (Version None)
Quarter: 2006Q3

REPORT INFORMATION
  Report Type: 
  Country: None (occurrence: None)
  Receive Date: 20060901
  Receipt Date: 20060816
  Transmission Date: 20061208
  Serious: Yes (Hospitalization, Other)
  Sender: FDA-Public Use
  Company Number: US-ABBOTT-06P-163-0340838-00

PATIENT
  Sex: Female
  Weight: 65.83 kg

DRUGS (4)
  1. OMNICEF [Suspect]
     Indication: PHARYNGITIS STREPTOCOCCAL
     Route: 048
     Dates: start: 20060726, end: 20060730
  2. PREDNISONE TAB [Concomitant]
     Indication: PHARYNGITIS STREPTOCOCCAL
     Route: 048
     Dates: start: 20060726, end: 20060728
  3. PREDNISONE TAB [Concomitant]
     Route: 048
  4. AMOXICILLIN [Concomitant]
     Indication: PHARYNGITIS STREPTOCOCCAL
     Route: 048
     Dates: start: 20060726

REACTIONS (7)
  - COLITIS [None]
  - DEHYDRATION [None]
  - DYSPHAGIA [None]
  - INFECTIOUS MONONUCLEOSIS [None]
  - NAUSEA [None]
  - PAIN [None]
  - PHARYNGITIS STREPTOCOCCAL [None]
